FAERS Safety Report 10240768 (Version 1)
Quarter: 2014Q2

REPORT INFORMATION
  Report Type: Spontaneous
  Country: US (occurrence: US)
  Receive Date: 20140617
  Receipt Date: 20140617
  Transmission Date: 20141212
  Serious: No
  Sender: FDA-Public Use
  Company Number: US-PFIZER INC-2014161899

PATIENT
  Sex: Female

DRUGS (5)
  1. MORPHINE SULFATE [Suspect]
     Dosage: UNK
  2. EFFEXOR XR [Suspect]
     Dosage: UNK
  3. CODEINE [Suspect]
     Dosage: UNK
  4. CELEXA [Suspect]
     Dosage: UNK
  5. PAXIL [Suspect]
     Dosage: UNK

REACTIONS (1)
  - Drug hypersensitivity [Unknown]
